FAERS Safety Report 19654561 (Version 2)
Quarter: 2025Q2

REPORT INFORMATION
  Report Type: Spontaneous
  Country: CA (occurrence: CA)
  Receive Date: 20210804
  Receipt Date: 20250627
  Transmission Date: 20250717
  Serious: Yes (Disabling, Other)
  Sender: SANOFI AVENTIS
  Company Number: CA-SA-SAC20210729000924

PATIENT
  Age: 50 Year
  Sex: Female

DRUGS (5)
  1. LEFLUNOMIDE [Suspect]
     Active Substance: LEFLUNOMIDE
     Indication: Rheumatoid arthritis
     Dosage: 20 MG, QD
     Route: 065
     Dates: start: 201902, end: 20190923
  2. METHOTREXATE [Suspect]
     Active Substance: METHOTREXATE
     Indication: Rheumatoid arthritis
     Dosage: 20 MG, QW
     Route: 065
     Dates: start: 20180423, end: 20190531
  3. HUMIRA [Suspect]
     Active Substance: ADALIMUMAB
     Indication: Rheumatoid arthritis
     Route: 058
     Dates: start: 201908, end: 201910
  4. PREDNISONE [Concomitant]
     Active Substance: PREDNISONE
     Indication: Rheumatoid arthritis
     Dates: start: 201802, end: 201902
  5. APREMILAST [Concomitant]
     Active Substance: APREMILAST
     Indication: Product used for unknown indication
     Dosage: 30 MCI, BID
     Dates: start: 20170419, end: 20190301

REACTIONS (11)
  - Arthralgia [Unknown]
  - Bone erosion [Unknown]
  - Disability [Unknown]
  - Drug intolerance [Unknown]
  - Pain [Unknown]
  - Rash [Unknown]
  - Drug-induced liver injury [Unknown]
  - Joint swelling [Unknown]
  - Drug hypersensitivity [Unknown]
  - Liver disorder [Unknown]
  - Drug ineffective [Unknown]

NARRATIVE: CASE EVENT DATE: 20190101
